FAERS Safety Report 13253758 (Version 2)
Quarter: 2017Q2

REPORT INFORMATION
  Report Type: Spontaneous
  Country: US (occurrence: US)
  Receive Date: 20170220
  Receipt Date: 20170403
  Transmission Date: 20170830
  Serious: Yes (Death, Other)
  Sender: FDA-Public Use
  Company Number: US-ASTELLAS-2017US006392

PATIENT
  Age: 62 Year
  Sex: Male

DRUGS (1)
  1. LEXISCAN [Suspect]
     Active Substance: REGADENOSON
     Indication: SCAN MYOCARDIAL PERFUSION
     Dosage: UNK UNK, UNKNOWN FREQ.
     Route: 065
     Dates: start: 20170109, end: 20170109

REACTIONS (5)
  - Injection site extravasation [Unknown]
  - Nausea [Unknown]
  - Cough [Unknown]
  - Ventricular fibrillation [Fatal]
  - Vomiting [Unknown]

NARRATIVE: CASE EVENT DATE: 20170109
